FAERS Safety Report 6163961-9 (Version None)
Quarter: 2009Q2

REPORT INFORMATION
  Report Type: 
  Country: None (occurrence: None)
  Receive Date: 20090422
  Receipt Date: 20090416
  Transmission Date: 20091009
  Serious: Yes (Other)
  Sender: FDA-Public Use
  Company Number: GB-WYE-G03520809

PATIENT
  Age: 40 Year
  Sex: Male

DRUGS (3)
  1. EFFEXOR [Suspect]
     Indication: DEPRESSION
     Dosage: 150MG, FREQUENCY UNSPECIFIED
     Route: 048
     Dates: start: 20080820, end: 20081217
  2. ALCOHOL [Suspect]
     Dosage: UNKNOWN
     Route: 048
     Dates: start: 20080820
  3. FLUOXETINE [Concomitant]
     Dosage: UNKNOWN
     Dates: end: 20080820

REACTIONS (6)
  - AGGRESSION [None]
  - ALCOHOL ABUSE [None]
  - ALCOHOL POISONING [None]
  - ALCOHOLISM [None]
  - CONDITION AGGRAVATED [None]
  - PHYSICAL ASSAULT [None]
